FAERS Safety Report 8583427-6 (Version None)
Quarter: 2012Q3

REPORT INFORMATION
  Report Type: 
  Country: None (occurrence: None)
  Receive Date: 20120809
  Receipt Date: 20120731
  Transmission Date: 20120928
  Serious: Yes (Other)
  Sender: FDA-Public Use
  Company Number: FR-FRI-1000037257

PATIENT
  Sex: Male
  Weight: 65 kg

DRUGS (5)
  1. ATACAND [Concomitant]
     Dosage: 8 MG
     Dates: start: 20120505
  2. BETA BLOCKING AGENT [Concomitant]
     Dates: start: 20120522
  3. ESCITALOPRAM [Suspect]
     Indication: DEPRESSION
     Dosage: 10 MG
     Route: 048
     Dates: start: 20120522, end: 20120523
  4. KERLONE [Concomitant]
     Dosage: 1 DF
  5. PREVISCAN [Concomitant]
     Dates: start: 20120201

REACTIONS (3)
  - PRESYNCOPE [None]
  - PANIC ATTACK [None]
  - ANXIETY [None]
